FAERS Safety Report 19151159 (Version 1)
Quarter: 2021Q2

REPORT INFORMATION
  Report Type: Report from Study
  Country: None (occurrence: US)
  Receive Date: 20210419
  Receipt Date: 20210419
  Transmission Date: 20210717
  Serious: Yes (Other)
  Sender: FDA-Public Use
  Company Number: US-ABBVIE-21K-163-3860735-00

PATIENT
  Sex: Male

DRUGS (1)
  1. IMBRUVICA [Suspect]
     Active Substance: IBRUTINIB
     Indication: CHRONIC LYMPHOCYTIC LEUKAEMIA
     Route: 048
     Dates: start: 20200821

REACTIONS (4)
  - Vision blurred [Not Recovered/Not Resolved]
  - Implantable defibrillator insertion [Not Recovered/Not Resolved]
  - Asthenia [Not Recovered/Not Resolved]
  - Incision site impaired healing [Not Recovered/Not Resolved]
